FAERS Safety Report 18406538 (Version 1)
Quarter: 2020Q4

REPORT INFORMATION
  Report Type: Spontaneous
  Country: US (occurrence: US)
  Receive Date: 20201020
  Receipt Date: 20201020
  Transmission Date: 20210114
  Serious: Yes (Other)
  Sender: FDA-Public Use
  Company Number: US-INDIVIOR EUROPE LIMITED-INDV-126834-2020

PATIENT
  Sex: Female

DRUGS (3)
  1. SUBOXONE [Suspect]
     Active Substance: BUPRENORPHINE HYDROCHLORIDE\NALOXONE HYDROCHLORIDE
     Indication: DRUG DEPENDENCE
     Dosage: UNK
     Route: 065
  2. BUPRENORPHINE/NALOXONE FILM GENERIC [Suspect]
     Active Substance: BUPRENORPHINE\NALOXONE
     Indication: DRUG DEPENDENCE
     Dosage: UNK
     Route: 065
  3. BUPRENORPHINE/NALOXONE FILM GENERIC [Suspect]
     Active Substance: BUPRENORPHINE\NALOXONE
     Dosage: UNK (TAPERING OFF TO ONE FOURTH FILM DAILY)
     Route: 065

REACTIONS (4)
  - Infectious pleural effusion [Recovered/Resolved]
  - Spinal osteoarthritis [Not Recovered/Not Resolved]
  - Gallbladder disorder [Unknown]
  - Osteoarthritis [Not Recovered/Not Resolved]
